FAERS Safety Report 10504594 (Version 1)
Quarter: 2014Q4

REPORT INFORMATION
  Report Type: Spontaneous
  Country: US (occurrence: None)
  Receive Date: 20141007
  Receipt Date: 20141007
  Transmission Date: 20150528
  Serious: Yes (Hospitalization)
  Sender: FDA-Public Use
  Company Number: None

PATIENT
  Age: 32 Year
  Sex: Female

DRUGS (2)
  1. ZOLADEX [Suspect]
     Active Substance: GOSERELIN ACETATE
     Dosage: 3.6MG, EVERY 21 DAYS
     Route: 030
     Dates: start: 20140416, end: 20140808
  2. LEUPROLIDE [Suspect]
     Active Substance: LEUPROLIDE
     Dosage: 10 UNITS DAILY SQ
     Route: 058
     Dates: start: 20140501, end: 20140808

REACTIONS (2)
  - Depression [None]
  - Suicide attempt [None]

NARRATIVE: CASE EVENT DATE: 20140808
